FAERS Safety Report 22204335 (Version 2)
Quarter: 2024Q1

REPORT INFORMATION
  Report Type: Spontaneous
  Country: US (occurrence: US)
  Receive Date: 20230412
  Receipt Date: 20240215
  Transmission Date: 20240409
  Serious: No
  Sender: FDA-Public Use
  Company Number: US-SA-SAC20230412000119

PATIENT
  Age: 73 Year
  Sex: Female

DRUGS (2)
  1. DUPIXENT [Suspect]
     Active Substance: DUPILUMAB
     Indication: Asthma
     Dosage: 300 MG, QOW
     Route: 058
     Dates: start: 20220127
  2. LORATADINE [Concomitant]
     Active Substance: LORATADINE

REACTIONS (4)
  - Bronchitis [Not Recovered/Not Resolved]
  - Fall [Unknown]
  - Back injury [Unknown]
  - Drug ineffective [Unknown]
